FAERS Safety Report 17801741 (Version 1)
Quarter: 2020Q2

REPORT INFORMATION
  Report Type: Spontaneous
  Country: US (occurrence: US)
  Receive Date: 20200518
  Receipt Date: 20200518
  Transmission Date: 20200714
  Serious: Yes (Hospitalization, Other)
  Sender: FDA-Public Use
  Company Number: None

PATIENT
  Age: 49 Year
  Sex: Male
  Weight: 85.7 kg

DRUGS (23)
  1. ALBUTEROL. [Concomitant]
     Active Substance: ALBUTEROL
  2. FENTANYL. [Concomitant]
     Active Substance: FENTANYL
  3. ASCORBIC ACID. [Concomitant]
     Active Substance: ASCORBIC ACID
  4. ASPIRIN. [Concomitant]
     Active Substance: ASPIRIN
  5. NORMOSOL-R [Concomitant]
     Active Substance: MAGNESIUM CHLORIDE\POTASSIUM CHLORIDE\SODIUM ACETATE ANHYDROUS\SODIUM CHLORIDE\SODIUM GLUCONATE
  6. TOCILIZUMAB. [Suspect]
     Active Substance: TOCILIZUMAB
     Indication: COVID-19
     Dosage: ?          OTHER FREQUENCY:ONCE;?
     Route: 040
     Dates: start: 20200418, end: 20200418
  7. AMLODIPINE [Concomitant]
     Active Substance: AMLODIPINE BESYLATE
  8. AZITHROMYCIN ANHYDROUS. [Concomitant]
     Active Substance: AZITHROMYCIN ANHYDROUS
  9. CALCIUM GLUCONATE. [Concomitant]
     Active Substance: CALCIUM GLUCONATE
  10. CEFEPIME [Concomitant]
     Active Substance: CEFEPIME HYDROCHLORIDE
  11. DOCUSATE [Concomitant]
     Active Substance: DOCUSATE
  12. FAMOTADINE [Concomitant]
  13. TOCILIZUMAB. [Suspect]
     Active Substance: TOCILIZUMAB
     Indication: OFF LABEL USE
     Dosage: ?          OTHER FREQUENCY:ONCE;?
     Route: 040
     Dates: start: 20200418, end: 20200418
  14. ACETAMINOPHEN. [Concomitant]
     Active Substance: ACETAMINOPHEN
  15. DEXMEDETOMIDINE. [Concomitant]
     Active Substance: DEXMEDETOMIDINE
  16. BISACODYL. [Concomitant]
     Active Substance: BISACODYL
  17. CEFTRIAXONE. [Concomitant]
     Active Substance: CEFTRIAXONE
  18. CHLORHEXIDINE [Concomitant]
     Active Substance: CHLORHEXIDINE
  19. CHLORPROMAZINE. [Concomitant]
     Active Substance: CHLORPROMAZINE
  20. DIPHENHYDRAMINE. [Concomitant]
     Active Substance: DIPHENHYDRAMINE
  21. FUROSEMIDE. [Concomitant]
     Active Substance: FUROSEMIDE
  22. HEPARIN [Concomitant]
     Active Substance: HEPARIN SODIUM
  23. HYDRALAZINE [Concomitant]
     Active Substance: HYDRALAZINE HYDROCHLORIDE

REACTIONS (1)
  - Fungaemia [None]

NARRATIVE: CASE EVENT DATE: 20200511
